FAERS Safety Report 12285794 (Version 1)
Quarter: 2016Q2

REPORT INFORMATION
  Report Type: Spontaneous
  Country: LV (occurrence: LV)
  Receive Date: 20160420
  Receipt Date: 20160420
  Transmission Date: 20160815
  Serious: Yes (Other)
  Sender: FDA-Public Use
  Company Number: LV-ABBVIE-16P-287-1609471-00

PATIENT
  Age: 3 Year
  Sex: Male

DRUGS (5)
  1. VENTOLIN [Concomitant]
     Active Substance: ALBUTEROL SULFATE
     Indication: PRODUCT USED FOR UNKNOWN INDICATION
  2. NASONEX [Concomitant]
     Active Substance: MOMETASONE FUROATE
     Indication: PRODUCT USED FOR UNKNOWN INDICATION
  3. KLACID PEDIATRIC [Suspect]
     Active Substance: CLARITHROMYCIN
     Indication: COUGH
     Route: 048
     Dates: start: 201603, end: 201603
  4. KLACID PEDIATRIC [Suspect]
     Active Substance: CLARITHROMYCIN
     Indication: RHINITIS
     Route: 065
  5. VIBROCIL [Concomitant]
     Indication: PRODUCT USED FOR UNKNOWN INDICATION

REACTIONS (3)
  - Feeling hot [Recovered/Resolved]
  - Agitation [Recovered/Resolved]
  - Psychotic disorder [Recovered/Resolved]

NARRATIVE: CASE EVENT DATE: 201603
